FAERS Safety Report 7811154-9 (Version None)
Quarter: 2011Q4

REPORT INFORMATION
  Report Type: 
  Country: None (occurrence: None)
  Receive Date: 20111013
  Receipt Date: 20111007
  Transmission Date: 20120403
  Serious: Yes (Death)
  Sender: FDA-Public Use
  Company Number: PHEH2011US06462

PATIENT
  Sex: Male

DRUGS (8)
  1. EXELON [Suspect]
     Route: 048
  2. LIPITOR [Concomitant]
  3. NAMENDA [Concomitant]
  4. ASPIRIN [Concomitant]
  5. EXELON [Suspect]
     Dosage: 9.5MG 1 PATCH /24HRS
     Route: 062
     Dates: end: 20110701
  6. CELEBREX [Concomitant]
  7. FENTANYL [Concomitant]
     Indication: PAIN
  8. NEXIUM [Concomitant]

REACTIONS (1)
  - NEOPLASM MALIGNANT [None]
